FAERS Safety Report 18915791 (Version 4)
Quarter: 2021Q4

REPORT INFORMATION
  Report Type: Spontaneous
  Country: TR (occurrence: TR)
  Receive Date: 20210219
  Receipt Date: 20211116
  Transmission Date: 20220303
  Serious: Yes (Other)
  Sender: FDA-Public Use
  Company Number: TR-PFIZER INC-2021153961

PATIENT
  Age: 43 Year
  Sex: Female
  Weight: 78 kg

DRUGS (4)
  1. IRINOTECAN HYDROCHLORIDE [Suspect]
     Active Substance: IRINOTECAN HYDROCHLORIDE
     Indication: Adenocarcinoma pancreas
     Dosage: UNK UNK, CYCLIC, TWO-WEEK CYCLES BETWEEN FEBRUARY 2019 AND MAY 2019.
     Route: 042
  2. OXALIPLATIN [Suspect]
     Active Substance: OXALIPLATIN
     Indication: Pancreatic carcinoma
     Dosage: UNK, CYCLIC, TWO-WEEK CYCLES BETWEEN FEBRUARY 2019 AND MAY 2019
     Route: 042
  3. FLUOROURACIL [Suspect]
     Active Substance: FLUOROURACIL
     Indication: Pancreatic carcinoma
     Dosage: UNK, CYCLIC, TWO-WEEK CYCLES BETWEEN FEBRUARY 2019 AND MAY 2019
     Route: 042
  4. CAPECITABINE [Concomitant]
     Active Substance: CAPECITABINE
     Dosage: UNK

REACTIONS (2)
  - Thrombocytopenia [Unknown]
  - Anaemia [Unknown]
